FAERS Safety Report 11287919 (Version 2)
Quarter: 2015Q3

REPORT INFORMATION
  Report Type: Spontaneous
  Country: JP (occurrence: JP)
  Receive Date: 20150721
  Receipt Date: 20150918
  Transmission Date: 20151125
  Serious: Yes (Hospitalization)
  Sender: FDA-Public Use
  Company Number: JP-PFIZER INC-2015236189

PATIENT
  Age: 46 Year
  Sex: Female

DRUGS (2)
  1. PROGESTONE [Concomitant]
     Dosage: 10 MG, UNK
  2. PREMARIN [Suspect]
     Active Substance: ESTROGENS, CONJUGATED
     Indication: OVARIAN FAILURE
     Dosage: 1 DF, MENSTRUAL CYCLIC
     Route: 048

REACTIONS (1)
  - Atypical fracture [Unknown]
